FAERS Safety Report 4699213-3 (Version None)
Quarter: 2005Q2

REPORT INFORMATION
  Report Type: 
  Country: None (occurrence: None)
  Receive Date: 20050622
  Receipt Date: 20050610
  Transmission Date: 20051028
  Serious: Yes (Death, Hospitalization)
  Sender: FDA-Public Use
  Company Number: 2005088500

PATIENT
  Age: 85 Year
  Sex: Female

DRUGS (6)
  1. CELEBREX [Suspect]
     Indication: OSTEOARTHRITIS
     Dosage: 200 MG
     Dates: start: 20041001, end: 20041101
  2. ACETAMINOPHEN [Concomitant]
  3. STILNOX (ZOLPIDEM) [Concomitant]
  4. KERLONE [Concomitant]
  5. ALDACTAZINE (ALTIZIDE, SPIRONOLACTONE) [Concomitant]
  6. ALL OTHER THERAPEUTIC PRODUCTS (ALL OTHER THERAPEUTIC PRODUCTS) [Concomitant]

REACTIONS (1)
  - CARDIAC FAILURE [None]
